FAERS Safety Report 26134886 (Version 1)
Quarter: 2025Q4

REPORT INFORMATION
  Report Type: Spontaneous
  Country: US (occurrence: None)
  Receive Date: 20251208
  Receipt Date: 20251208
  Transmission Date: 20260118
  Serious: Yes (Hospitalization)
  Sender: FDA-CTU
  Company Number: None

PATIENT
  Age: 44 Year
  Sex: Female
  Weight: 85.5 kg

DRUGS (1)
  1. CLARITIN ANTIHISTAMINE [Suspect]
     Active Substance: LORATADINE
     Dosage: 60 CAPSULE(S) ORAL
     Route: 048
     Dates: start: 20251206, end: 20251206

REACTIONS (5)
  - Expired product administered [None]
  - Abdominal pain [None]
  - Discomfort [None]
  - Vomiting [None]
  - Diarrhoea [None]

NARRATIVE: CASE EVENT DATE: 20251208
